FAERS Safety Report 6611893-1 (Version None)
Quarter: 2010Q1

REPORT INFORMATION
  Report Type: 
  Country: None (occurrence: None)
  Receive Date: 20100225
  Receipt Date: 20100211
  Transmission Date: 20100710
  Serious: Yes (Death)
  Sender: FDA-Public Use
  Company Number: A-NJ2009-33802

PATIENT
  Age: 52 Year
  Sex: Male

DRUGS (3)
  1. VENTAVIS [Suspect]
     Indication: PULMONARY ARTERIAL HYPERTENSION
     Dosage: 5 UG, RESPIRATORY
     Route: 055
     Dates: start: 20061106, end: 20091019
  2. SILDENAFIL TABLET [Concomitant]
  3. COUMADIN [Concomitant]

REACTIONS (1)
  - HOSPITALISATION [None]
